FAERS Safety Report 12421458 (Version 7)
Quarter: 2016Q4

REPORT INFORMATION
  Report Type: Report from Study
  Country: DE (occurrence: DE)
  Receive Date: 20160531
  Receipt Date: 20161216
  Transmission Date: 20170207
  Serious: Yes (Hospitalization)
  Sender: FDA-Public Use
  Company Number: DE-CELGENEUS-DEU-2016047827

PATIENT
  Age: 77 Year
  Sex: Male
  Weight: 75.4 kg

DRUGS (52)
  1. FOLIC ACID. [Concomitant]
     Active Substance: FOLIC ACID
     Dosage: 8 MG
     Route: 065
     Dates: start: 201411
  2. SIFROL [Concomitant]
     Active Substance: PRAMIPEXOLE
     Indication: RESTLESS LEGS SYNDROME
     Dosage: 0.36 MG
     Route: 065
     Dates: start: 2012
  3. FORTIMEL [Concomitant]
     Active Substance: DIETARY SUPPLEMENT
     Indication: PROPHYLAXIS
     Dosage: 200 ML
     Route: 065
     Dates: start: 20160128
  4. ZOPICLONE [Concomitant]
     Active Substance: ZOPICLONE
     Indication: INSOMNIA
     Dosage: 7.5 MG
     Route: 065
     Dates: start: 20160505, end: 20160505
  5. TOREM [Concomitant]
     Active Substance: TORSEMIDE
     Dosage: 10 MG
     Route: 065
     Dates: start: 201509, end: 20161110
  6. ZOFRAN [Concomitant]
     Active Substance: ONDANSETRON HYDROCHLORIDE
     Indication: PRODUCT USED FOR UNKNOWN INDICATION
     Route: 065
  7. CLEXANE [Concomitant]
     Active Substance: ENOXAPARIN SODIUM
     Indication: THROMBOSIS PROPHYLAXIS
     Dosage: 0.4 ML
     Route: 058
     Dates: start: 20160606, end: 20160606
  8. CALCIUM CHLORIDE. [Concomitant]
     Active Substance: CALCIUM CHLORIDE
     Indication: HYPOCALCAEMIA
     Dosage: 80 ML
     Route: 065
     Dates: start: 20160505, end: 20160506
  9. ABRAXANE [Suspect]
     Active Substance: PACLITAXEL
     Indication: ADENOCARCINOMA PANCREAS
     Dosage: 125 MG/M2
     Route: 041
     Dates: start: 20151208, end: 20151223
  10. ABRAXANE [Suspect]
     Active Substance: PACLITAXEL
     Route: 041
     Dates: end: 20160517
  11. TOREM [Concomitant]
     Active Substance: TORSEMIDE
     Indication: HYPERTENSION
     Dosage: 40 MG
     Route: 048
     Dates: start: 201509
  12. FOLIC ACID. [Concomitant]
     Active Substance: FOLIC ACID
     Indication: OSTEOPOROSIS
     Dosage: 5 MG
     Route: 065
  13. PALONOSETRON [Concomitant]
     Active Substance: PALONOSETRON
     Indication: PROPHYLAXIS
     Route: 065
     Dates: start: 20151208, end: 20160607
  14. POLIHEXANID [Concomitant]
     Indication: NECK PAIN
     Route: 065
     Dates: start: 20151208
  15. IBUPROFEN. [Concomitant]
     Active Substance: IBUPROFEN
     Indication: MUSCULOSKELETAL CHEST PAIN
     Route: 065
     Dates: start: 201509
  16. ONDANSETRON [Concomitant]
     Active Substance: ONDANSETRON
     Indication: PROPHYLAXIS
     Route: 065
     Dates: start: 20151229, end: 201605
  17. TORASEMID [Concomitant]
     Active Substance: TORSEMIDE
     Dosage: 40 MG
     Route: 065
     Dates: start: 20160425
  18. GEMCITABINE [Suspect]
     Active Substance: GEMCITABINE\GEMCITABINE HYDROCHLORIDE
     Dosage: 600 MG/M2
     Route: 041
     Dates: start: 20160411, end: 20160425
  19. GEMCITABINE [Suspect]
     Active Substance: GEMCITABINE\GEMCITABINE HYDROCHLORIDE
     Dosage: 600 MG/M2
     Route: 041
     Dates: start: 20160518
  20. XIPAMIDE [Concomitant]
     Active Substance: XIPAMIDE
     Indication: OEDEMA PERIPHERAL
     Dosage: 5 MG
     Route: 065
     Dates: start: 20160321
  21. DEKRISTOL [Concomitant]
     Active Substance: CHOLECALCIFEROL
     Indication: PRODUCT USED FOR UNKNOWN INDICATION
     Dosage: 20000IU
     Route: 065
     Dates: start: 201501
  22. MACROGOL [Concomitant]
     Active Substance: POLYETHYLENE GLYCOLS
     Indication: CONSTIPATION
     Route: 065
  23. MAGNESIUM CITRATE. [Concomitant]
     Active Substance: MAGNESIUM CITRATE
     Indication: PROPHYLAXIS
     Dosage: 205 MG
     Route: 065
     Dates: start: 20160114
  24. TORASEMID [Concomitant]
     Active Substance: TORSEMIDE
     Dosage: 30 MG
     Route: 065
     Dates: start: 20160527, end: 20160531
  25. ABRAXANE [Suspect]
     Active Substance: PACLITAXEL
     Dosage: 75 MG/M2
     Route: 041
     Dates: start: 20160518
  26. RESTEX [Concomitant]
     Active Substance: BENSERAZIDE
     Indication: RESTLESS LEGS SYNDROME
     Dosage: 100/25 MG
     Route: 048
     Dates: start: 20151228
  27. KALINOR [Concomitant]
     Active Substance: POTASSIUM CITRATE
     Indication: PRODUCT USED FOR UNKNOWN INDICATION
     Route: 048
  28. MAGNESIUM VERLA [Concomitant]
     Active Substance: MAGNESIUM
     Indication: PRODUCT USED FOR UNKNOWN INDICATION
     Route: 058
  29. DIMENTIDEN [Concomitant]
     Dosage: 4 MG
     Route: 065
     Dates: start: 20160520, end: 20160525
  30. CALCIUM CHLORIDE. [Concomitant]
     Active Substance: CALCIUM CHLORIDE
     Dosage: 60 ML
     Route: 065
     Dates: start: 20160509, end: 20160509
  31. LYRICA [Concomitant]
     Active Substance: PREGABALIN
     Indication: RESTLESS LEGS SYNDROME
     Dosage: 150 MG
     Route: 048
     Dates: start: 2012
  32. KALINOR [Concomitant]
     Active Substance: POTASSIUM CITRATE
     Indication: PROPHYLAXIS
     Route: 065
     Dates: start: 20151228
  33. ZOPICLONE [Concomitant]
     Active Substance: ZOPICLONE
     Dosage: 7.5 MG
     Route: 065
     Dates: start: 20160512, end: 20160512
  34. CALCIUM CITRATE [Concomitant]
     Active Substance: CALCIUM CITRATE
     Indication: PROPHYLAXIS
     Dosage: 80 MMCL
     Route: 065
     Dates: start: 20160507
  35. GEMCITABINE [Suspect]
     Active Substance: GEMCITABINE\GEMCITABINE HYDROCHLORIDE
     Indication: ADENOCARCINOMA PANCREAS
     Dosage: 1000 MG/M2
     Route: 041
     Dates: start: 20151208, end: 20151223
  36. L THYROXINE [Concomitant]
     Active Substance: LEVOTHYROXINE SODIUM
     Indication: HYPOTHYROIDISM
     Dosage: 125 MCG
     Route: 048
     Dates: start: 20151126
  37. PRAMIPAZOL [Concomitant]
     Indication: PRODUCT USED FOR UNKNOWN INDICATION
     Dosage: 0.36 MG
     Route: 065
  38. FENISTIL [Concomitant]
     Active Substance: DIMETHINDENE
     Indication: ALLERGY PROPHYLAXIS
     Dosage: 4 MG
     Route: 065
     Dates: start: 20160504, end: 20160508
  39. FRESUBIN [Concomitant]
     Active Substance: AMINO ACIDS\DEXTROSE\ELECTROLYTES NOS\SOYBEAN OIL\VITAMINS
     Indication: PRODUCT USED FOR UNKNOWN INDICATION
     Dosage: 600 ML
     Route: 065
  40. DEXAMETHASONE. [Concomitant]
     Active Substance: DEXAMETHASONE
     Indication: PROPHYLAXIS
     Route: 065
     Dates: start: 20151208, end: 20160607
  41. CALOGEN [Concomitant]
     Indication: PROPHYLAXIS
     Dosage: 30ML
     Route: 065
     Dates: start: 20160211
  42. TORASEMID [Concomitant]
     Active Substance: TORSEMIDE
     Indication: OEDEMA PERIPHERAL
     Dosage: 20 MG
     Route: 065
     Dates: start: 20160222, end: 20160424
  43. DIMENTIDEN [Concomitant]
     Dosage: 1.432 MG
     Route: 065
     Dates: start: 20160606, end: 20160606
  44. PANTOZOL [Concomitant]
     Active Substance: PANTOPRAZOLE SODIUM
     Indication: PROPHYLAXIS AGAINST GASTROINTESTINAL ULCER
     Dosage: 20 MG
     Route: 065
     Dates: start: 20160509
  45. SPIRONOLACTON [Concomitant]
     Active Substance: SPIRONOLACTONE
     Indication: OEDEMA PERIPHERAL
     Dosage: 25 MG
     Route: 065
     Dates: start: 20160510
  46. ABRAXANE [Suspect]
     Active Substance: PACLITAXEL
     Dosage: 75 MG/M2
     Route: 041
     Dates: start: 20160411, end: 20160425
  47. GEMCITABINE [Suspect]
     Active Substance: GEMCITABINE\GEMCITABINE HYDROCHLORIDE
     Route: 041
     Dates: end: 20160517
  48. GEMCITABINE [Suspect]
     Active Substance: GEMCITABINE\GEMCITABINE HYDROCHLORIDE
     Route: 041
     Dates: start: 201601
  49. XIPAMIDE [Concomitant]
     Active Substance: XIPAMIDE
     Indication: POLYURIA
     Dosage: 10 MG
     Route: 048
     Dates: start: 20160321
  50. MACROGOL [Concomitant]
     Active Substance: POLYETHYLENE GLYCOLS
     Route: 065
     Dates: start: 201509
  51. DIMENTIDEN [Concomitant]
     Indication: ALLERGY PROPHYLAXIS
     Dosage: 4 MG
     Route: 065
     Dates: start: 20160425, end: 20160425
  52. SIMETICON [Concomitant]
     Indication: ABDOMINAL DISTENSION
     Dosage: 30 DROPS
     Route: 065
     Dates: start: 20160518, end: 20160518

REACTIONS (5)
  - Infection [Recovered/Resolved]
  - Chills [Recovered/Resolved]
  - Infection [Recovered/Resolved]
  - Pyrexia [Recovered/Resolved]
  - Febrile infection [Recovered/Resolved]

NARRATIVE: CASE EVENT DATE: 20160426
